FAERS Safety Report 11166515 (Version 1)
Quarter: 2015Q2

REPORT INFORMATION
  Report Type: Spontaneous
  Country: US (occurrence: US)
  Receive Date: 20150605
  Receipt Date: 20150605
  Transmission Date: 20150821
  Serious: No
  Sender: FDA-Public Use
  Company Number: US-JNJFOC-20150423141

PATIENT
  Age: 11 Year
  Sex: Male
  Weight: 63.5 kg

DRUGS (2)
  1. METHYLPHENIDATE HYDROCHLORIDE WATSON [Suspect]
     Active Substance: METHYLPHENIDATE HYDROCHLORIDE
     Indication: OPPOSITIONAL DEFIANT DISORDER
     Route: 048
     Dates: start: 2015
  2. METHYLPHENIDATE HYDROCHLORIDE WATSON [Suspect]
     Active Substance: METHYLPHENIDATE HYDROCHLORIDE
     Indication: ATTENTION DEFICIT/HYPERACTIVITY DISORDER
     Route: 048
     Dates: start: 2015

REACTIONS (2)
  - Personality change [Not Recovered/Not Resolved]
  - Disturbance in social behaviour [Not Recovered/Not Resolved]

NARRATIVE: CASE EVENT DATE: 201504
